FAERS Safety Report 21546871 (Version 1)
Quarter: 2022Q4

REPORT INFORMATION
  Report Type: Spontaneous
  Country: CN (occurrence: CN)
  Receive Date: 20221103
  Receipt Date: 20221103
  Transmission Date: 20230113
  Serious: Yes (Other)
  Sender: FDA-Public Use
  Company Number: CN-BRISTOL-MYERS SQUIBB COMPANY-2022-131515

PATIENT
  Age: 60 Year
  Sex: Male
  Weight: 62.5 kg

DRUGS (5)
  1. OPDIVO [Suspect]
     Active Substance: NIVOLUMAB
     Indication: Oesophageal squamous cell carcinoma
     Route: 041
     Dates: start: 20220902, end: 20220916
  2. Aiyue [Concomitant]
     Indication: Oesophageal squamous cell carcinoma
     Dosage: 150MG D1, 8, 15
     Route: 065
     Dates: start: 20220902, end: 20220923
  3. Aiyue [Concomitant]
     Route: 065
     Dates: start: 20220922
  4. NEDAPLATIN [Concomitant]
     Active Substance: NEDAPLATIN
     Indication: Oesophageal squamous cell carcinoma
     Route: 065
     Dates: start: 20220902, end: 20220923
  5. NEDAPLATIN [Concomitant]
     Active Substance: NEDAPLATIN
     Route: 065
     Dates: start: 20220922

REACTIONS (1)
  - Thrombocytopenia [Recovered/Resolved]

NARRATIVE: CASE EVENT DATE: 20220928
